FAERS Safety Report 7167640-0 (Version None)
Quarter: 2010Q4

REPORT INFORMATION
  Report Type: 
  Country: None (occurrence: None)
  Receive Date: 20101216
  Receipt Date: 20100618
  Transmission Date: 20110411
  Serious: No
  Sender: FDA-Public Use
  Company Number: A0866079A

PATIENT
  Age: 70 Year
  Sex: Female

DRUGS (2)
  1. NICOTINE POLACRILEX [Suspect]
  2. NICORETTE [Suspect]

REACTIONS (3)
  - DRUG INEFFECTIVE [None]
  - INTENTIONAL DRUG MISUSE [None]
  - NICOTINE DEPENDENCE [None]
